FAERS Safety Report 6866573-4 (Version None)
Quarter: 2010Q2

REPORT INFORMATION
  Report Type: 
  Country: None (occurrence: None)
  Receive Date: 20100528
  Receipt Date: 20100322
  Transmission Date: 20101027
  Serious: Yes (Life-Threatening)
  Sender: FDA-Public Use
  Company Number: 009139

PATIENT
  Age: 17 Year
  Sex: Female

DRUGS (1)
  1. LACOSAMIDE [Suspect]
     Dosage: 100 MG BID ORAL
     Route: 048

REACTIONS (2)
  - INSOMNIA [None]
  - SUICIDAL IDEATION [None]
